FAERS Safety Report 8579325-4 (Version None)
Quarter: 2012Q3

REPORT INFORMATION
  Report Type: 
  Country: None (occurrence: None)
  Receive Date: 20120808
  Receipt Date: 20120801
  Transmission Date: 20120928
  Serious: Yes (Hospitalization)
  Sender: FDA-Public Use
  Company Number: HK-ROCHE-758182

PATIENT
  Sex: Female
  Weight: 64.3 kg

DRUGS (9)
  1. MODURETIC 5-50 [Concomitant]
     Dosage: 1 TAB QD
     Dates: start: 20110930
  2. AVASTIN [Suspect]
     Indication: MALIGNANT PERITONEAL NEOPLASM
     Dosage: LAST DOSE PRIOR TO SAE 17/JAN/2011
     Route: 042
     Dates: start: 20110117, end: 20110209
  3. CARBOPLATIN [Suspect]
     Route: 042
  4. PACLITAXEL [Suspect]
     Indication: MALIGNANT PERITONEAL NEOPLASM
     Dosage: LAST DOSE PRIOR TO SAE 17/JAN/2011
     Route: 042
     Dates: start: 20110117, end: 20110209
  5. ATENOLOL [Concomitant]
     Dates: start: 20071005
  6. MODURETIC 5-50 [Concomitant]
     Dosage: 0.5 TAB QD
     Dates: start: 20081013, end: 20110929
  7. PACLITAXEL [Suspect]
     Route: 042
  8. AVASTIN [Suspect]
     Route: 042
  9. CARBOPLATIN [Suspect]
     Indication: MALIGNANT PERITONEAL NEOPLASM
     Dosage: LAST DOSE PRIOR TO SAE 17/JAN/2011
     Route: 042
     Dates: start: 20110117, end: 20110209

REACTIONS (3)
  - ALANINE AMINOTRANSFERASE ABNORMAL [None]
  - BLOOD ALKALINE PHOSPHATASE ABNORMAL [None]
  - ASPARTATE AMINOTRANSFERASE ABNORMAL [None]
